FAERS Safety Report 9459662 (Version 1)
Quarter: 2013Q3

REPORT INFORMATION
  Report Type: Report from Study
  Country: US (occurrence: US)
  Receive Date: 20130815
  Receipt Date: 20130815
  Transmission Date: 20140515
  Serious: Yes (Other)
  Sender: FDA-Public Use
  Company Number: PHEH2013US016977

PATIENT
  Age: 84 Year
  Sex: Female

DRUGS (3)
  1. EXELON PATCH [Suspect]
     Indication: DEMENTIA ALZHEIMER^S TYPE
     Dosage: 9.5 MG DAILY
     Route: 062
  2. IMODIUM [Suspect]
     Dosage: UNK UKN, UNK
  3. LOMOTIL [Suspect]
     Dosage: UNK UKN, UNK

REACTIONS (9)
  - Intestinal obstruction [Not Recovered/Not Resolved]
  - Nausea [Not Recovered/Not Resolved]
  - Vomiting [Not Recovered/Not Resolved]
  - Intestinal dilatation [Recovered/Resolved]
  - Dilatation intrahepatic duct acquired [Recovered/Resolved]
  - Diarrhoea [Not Recovered/Not Resolved]
  - Aggression [Not Recovered/Not Resolved]
  - Faecal incontinence [Not Recovered/Not Resolved]
  - Urinary incontinence [Not Recovered/Not Resolved]
